FAERS Safety Report 8423276-2 (Version None)
Quarter: 2012Q2

REPORT INFORMATION
  Report Type: 
  Country: None (occurrence: None)
  Receive Date: 20120608
  Receipt Date: 20120604
  Transmission Date: 20120825
  Serious: Yes (Other)
  Sender: FDA-Public Use
  Company Number: US-PFIZER INC-2012134781

PATIENT
  Sex: Female
  Weight: 62.6 kg

DRUGS (6)
  1. AMLODIPINE BESYLATE [Suspect]
     Dosage: 5 MG, UNK
  2. LOSARTAN POTASSIUM [Interacting]
     Dosage: 50 MG, UNK
  3. METOPROLOL TARTRATE [Interacting]
     Dosage: UNK
  4. PLAVIX [Interacting]
     Dosage: 75 MG, UNK
     Dates: start: 20120501
  5. COD-LIVER OIL [Interacting]
     Dosage: UNK
  6. OMEPRAZOLE [Interacting]
     Dosage: 20 MG, UNK

REACTIONS (6)
  - VISUAL IMPAIRMENT [None]
  - INTRAOCULAR PRESSURE INCREASED [None]
  - ASTHENIA [None]
  - DRUG INTERACTION [None]
  - FATIGUE [None]
  - HYPERTENSION [None]
